FAERS Safety Report 7514777-X (Version None)
Quarter: 2011Q2

REPORT INFORMATION
  Report Type: 
  Country: None (occurrence: None)
  Receive Date: 20110601
  Receipt Date: 20110524
  Transmission Date: 20111010
  Serious: Yes (Other)
  Sender: FDA-Public Use
  Company Number: US-US-EMD SERONO, INC.-7062163

PATIENT
  Sex: Male
  Weight: 100 kg

DRUGS (5)
  1. LYRICA [Concomitant]
  2. REBIF [Suspect]
     Route: 058
     Dates: start: 20110524
  3. NAPROXEN (ALEVE) [Concomitant]
  4. REBIF [Suspect]
     Indication: PRODUCT USED FOR UNKNOWN INDICATION
     Route: 058
     Dates: end: 20110216
  5. DITROPAN [Concomitant]

REACTIONS (3)
  - URTICARIA [None]
  - FALL [None]
  - FOOT FRACTURE [None]
